FAERS Safety Report 4286702-9 (Version None)
Quarter: 2004Q1

REPORT INFORMATION
  Report Type: 
  Country: None (occurrence: None)
  Receive Date: 20040204
  Receipt Date: 20040130
  Transmission Date: 20041129
  Serious: Yes (Other)
  Sender: FDA-Public Use
  Company Number: 200410038BFR

PATIENT
  Age: 42 Year
  Sex: Male

DRUGS (4)
  1. IZILOX (MOXIFLOXACIN HYDROCHLORIDE) [Suspect]
     Indication: SINUSITIS
     Dosage: ORAL
     Route: 048
  2. DETURGYLONE [Concomitant]
  3. ACETYLCISTEIN [Concomitant]
  4. PREDNISOLONE [Concomitant]

REACTIONS (5)
  - ANXIETY [None]
  - BLINDNESS [None]
  - DYSGRAPHIA [None]
  - HEADACHE [None]
  - VISION BLURRED [None]
